FAERS Safety Report 8351995-5 (Version None)
Quarter: 2012Q2

REPORT INFORMATION
  Report Type: 
  Country: None (occurrence: None)
  Receive Date: 20120511
  Receipt Date: 20120504
  Transmission Date: 20120825
  Serious: Yes (Hospitalization)
  Sender: FDA-Public Use
  Company Number: US-BAYER-2012-006568

PATIENT
  Age: 21 Year
  Sex: Female
  Weight: 98.866 kg

DRUGS (9)
  1. NAPROSYN [Concomitant]
     Indication: HEADACHE
  2. ONDANSETRON [Concomitant]
  3. CONCERTA [Concomitant]
     Dosage: 3 MG, UNK
  4. YAZ [Suspect]
     Dosage: UNK
     Route: 048
     Dates: start: 20090622, end: 20100801
  5. WELLBUTRIN SR [Concomitant]
     Dosage: 150 MG, QID
  6. YAZ [Suspect]
     Indication: CONTRACEPTION
     Dates: start: 20070502, end: 20080303
  7. IMITREX [Concomitant]
     Indication: HEADACHE
  8. IBUPROFEN [Concomitant]
  9. MAXALT [Concomitant]

REACTIONS (2)
  - CEREBROVASCULAR ACCIDENT [None]
  - INJURY [None]
